FAERS Safety Report 21463407 (Version 1)
Quarter: 2022Q4

REPORT INFORMATION
  Report Type: Spontaneous
  Country: DE (occurrence: None)
  Receive Date: 20221017
  Receipt Date: 20221017
  Transmission Date: 20230113
  Serious: Yes (Other)
  Sender: FDA-Public Use
  Company Number: DE-ROCHE-3200605

PATIENT
  Age: 49 Year
  Sex: Female

DRUGS (4)
  1. PERJETA [Suspect]
     Active Substance: PERTUZUMAB
     Indication: Breast cancer metastatic
     Dosage: IN COMBINATION WITH TRASTUZUMAB AND CHEMOTHERAPY NOS
     Route: 050
     Dates: start: 2019
  2. PERJETA [Suspect]
     Active Substance: PERTUZUMAB
     Dosage: IN COMBINATION WITH TRASTUZUMAB
     Route: 042
  3. TRASTUZUMAB [Suspect]
     Active Substance: TRASTUZUMAB
     Indication: Breast cancer metastatic
     Dosage: IN COMBINATION WITH PERJETA AND CHEMOTHERAPY NOS
     Route: 041
     Dates: start: 2019
  4. TRASTUZUMAB [Suspect]
     Active Substance: TRASTUZUMAB
     Dosage: IN COMBINATION WITH PERJETA
     Route: 042

REACTIONS (3)
  - Cardiac failure [Not Recovered/Not Resolved]
  - Renal failure [Not Recovered/Not Resolved]
  - Polyneuropathy [Not Recovered/Not Resolved]
